FAERS Safety Report 5499370-5 (Version None)
Quarter: 2007Q4

REPORT INFORMATION
  Report Type: 
  Country: None (occurrence: None)
  Receive Date: 20071026
  Receipt Date: 20071022
  Transmission Date: 20080405
  Serious: Yes (Disabling)
  Sender: FDA-Public Use
  Company Number: A0686908A

PATIENT
  Age: 27 Year
  Sex: Male

DRUGS (2)
  1. LAMICTAL [Suspect]
     Indication: BIPOLAR DISORDER
     Dosage: 25MG PER DAY
     Route: 048
     Dates: start: 20070901
  2. SEROQUEL [Concomitant]

REACTIONS (3)
  - ABNORMAL DREAMS [None]
  - HYPNAGOGIC HALLUCINATION [None]
  - INSOMNIA [None]
